FAERS Safety Report 7587043-4 (Version None)
Quarter: 2011Q3

REPORT INFORMATION
  Report Type: 
  Country: None (occurrence: None)
  Receive Date: 20110701
  Receipt Date: 20110621
  Transmission Date: 20111222
  Serious: Yes (Other)
  Sender: FDA-Public Use
  Company Number: PHHY2011US32594

PATIENT
  Age: 84 Year
  Sex: Female

DRUGS (13)
  1. GENTEAL [Suspect]
     Indication: DRY EYE
     Dosage: UNK UKN, AS NEEDED DURING DAY TIME
  2. FISH OIL [Concomitant]
     Dosage: UNK UKN, UNK
  3. CALCIUM CARBONATE [Concomitant]
     Dosage: UNK UKN, UNK
  4. CRESTOR [Concomitant]
     Dosage: UNK UKN, UNK
  5. GENTEAL PM LUBRICANT EYE OINTMENT [Suspect]
     Indication: DRY EYE
     Dosage: UNK UKN, AS NEEDED DURING DAY TIME
  6. GENTEAL GEL [Suspect]
     Indication: DRY EYE
     Dosage: UNK UKN, AS NEEDED DURING DAY TIME
  7. CENTRUM [Concomitant]
     Dosage: UNK UKN, UNK
  8. ASCORBIC ACID [Concomitant]
     Dosage: UNK UKN, UNK
  9. NEXIUM [Concomitant]
     Dosage: UNK UKN, UNK
  10. LEVOTHYROXINE SODIUM [Concomitant]
     Dosage: UNK UKN, UNK
  11. CARDIZEM [Concomitant]
     Dosage: UNK UKN, UNK
  12. VITAMIN B6 [Concomitant]
     Dosage: UNK UKN, UNK
  13. VITAMIN-MINERAL COMPOUND TAB [Concomitant]
     Dosage: UNK UKN, BID

REACTIONS (4)
  - VISION BLURRED [None]
  - EYE PAIN [None]
  - MACULAR DEGENERATION [None]
  - BLEPHAROSPASM [None]
